FAERS Safety Report 8775959 (Version 2)
Quarter: 2012Q4

REPORT INFORMATION
  Report Type: 
  Country: US (occurrence: US)
  Receive Date: 20120910
  Receipt Date: 20121106
  Transmission Date: 20130627
  Serious: Yes (Hospitalization, Disabling, Other)
  Sender: FDA-Public Use
  Company Number: US-009507513-1203USA03328

PATIENT

DRUGS (9)
  1. FOSAMAX [Suspect]
     Indication: OSTEOPOROSIS
     Dosage: 10 mg, qd
     Route: 048
     Dates: start: 1996
  2. FOSAMAX [Suspect]
     Dosage: 70 mg, QW
     Route: 048
     Dates: start: 1997
  3. FOSAMAX [Suspect]
     Indication: OSTEOPOROSIS
     Route: 048
     Dates: start: 1998, end: 200812
  4. ALENDRONATE SODIUM [Suspect]
     Indication: OSTEOPOROSIS
     Dosage: 70 mg, QW
     Route: 048
     Dates: start: 20080325, end: 20080915
  5. FOSAMAX PLUS D [Suspect]
     Indication: OSTEOPOROSIS
     Dosage: 5600 IU, QW
     Route: 048
     Dates: start: 20080102
  6. FOSAMAX PLUS D [Suspect]
     Indication: OSTEOPOROSIS
     Dosage: 2800 IU, QW
     Route: 048
     Dates: start: 20080102
  7. FOSAMAX PLUS D [Suspect]
     Dosage: 5600 IU, QW
     Route: 048
     Dates: start: 20080102
  8. CALCIUM (UNSPECIFIED) [Concomitant]
     Dosage: 600 mg, tid
     Dates: start: 1997
  9. MK-9278 [Concomitant]
     Dosage: UNK
     Dates: start: 1997

REACTIONS (71)
  - Intramedullary rod insertion [Unknown]
  - Femur fracture [Not Recovered/Not Resolved]
  - Low turnover osteopathy [Unknown]
  - Osteoporosis [Unknown]
  - Femur fracture [Unknown]
  - Femur fracture [Unknown]
  - Hypercholesterolaemia [Unknown]
  - Vitamin D deficiency [Unknown]
  - Diarrhoea [Unknown]
  - Glaucoma [Unknown]
  - Vascular calcification [Unknown]
  - Osteoarthritis [Unknown]
  - Spinal disorder [Unknown]
  - Osteoarthritis [Unknown]
  - Stress fracture [Unknown]
  - Hyperthyroidism [Unknown]
  - Haemoglobin decreased [Recovering/Resolving]
  - Haematocrit decreased [Recovering/Resolving]
  - Hypokalaemia [Unknown]
  - Post procedural hypothyroidism [Unknown]
  - Asthma [Unknown]
  - Chronic sinusitis [Not Recovered/Not Resolved]
  - Appendix disorder [Unknown]
  - Blood iron increased [Unknown]
  - Serum ferritin increased [Unknown]
  - Hyperparathyroidism [Unknown]
  - Breast mass [Unknown]
  - Rib fracture [Unknown]
  - Kyphoscoliosis [Unknown]
  - Scoliosis [Unknown]
  - Lipohypertrophy [Unknown]
  - Asthenia [Unknown]
  - Dizziness [Unknown]
  - Visual impairment [Unknown]
  - Hungry bone syndrome [Unknown]
  - Throat irritation [Unknown]
  - Dysphagia [Unknown]
  - Goitre [Unknown]
  - Haemochromatosis [Unknown]
  - Goitre [Unknown]
  - Abdominal discomfort [Unknown]
  - Arthralgia [Unknown]
  - Arthritis [Unknown]
  - Bursitis [Unknown]
  - Fracture delayed union [Unknown]
  - Impaired healing [Unknown]
  - Fracture delayed union [Unknown]
  - Oedema peripheral [Unknown]
  - Senile osteoporosis [Unknown]
  - Osteoporosis [Unknown]
  - Blood test abnormal [Unknown]
  - Deficiency anaemia [Unknown]
  - Osteomalacia [Unknown]
  - Femur fracture [Recovered/Resolved]
  - Sleep disorder [Unknown]
  - Palpitations [Unknown]
  - Femur fracture [Not Recovered/Not Resolved]
  - Intramedullary rod insertion [Unknown]
  - Traumatic fracture [Unknown]
  - Limb deformity [Not Recovered/Not Resolved]
  - Parathyroidectomy [Unknown]
  - Gait disturbance [Unknown]
  - Gait disturbance [Unknown]
  - Contusion [Unknown]
  - Contusion [Unknown]
  - Contusion [Unknown]
  - Fall [Unknown]
  - Contusion [Unknown]
  - Contusion [Unknown]
  - Fall [Unknown]
  - Hip deformity [Not Recovered/Not Resolved]
